FAERS Safety Report 4640621-4 (Version None)
Quarter: 2005Q2

REPORT INFORMATION
  Report Type: 
  Country: None (occurrence: None)
  Receive Date: 20050419
  Receipt Date: 20050406
  Transmission Date: 20051028
  Serious: Yes (Hospitalization)
  Sender: FDA-Public Use
  Company Number: 2005055741

PATIENT
  Age: 43 Year
  Sex: Female

DRUGS (5)
  1. ZYRTEC [Suspect]
     Indication: RHINITIS ALLERGIC
     Dosage: 10 MG, ORAL
     Route: 048
     Dates: start: 20050226, end: 20050306
  2. OLOPATADINE HYDROCHLORIDE (OLOPATADINE HYDROCHLORIDE) [Suspect]
     Indication: ILL-DEFINED DISORDER
     Dosage: ORAL
     Route: 048
     Dates: start: 20050307, end: 20050308
  3. OXATOMIDE [Suspect]
     Indication: ILL-DEFINED DISORDER
     Dosage: ORAL
     Route: 048
     Dates: start: 20050309
  4. CEFCAPENE PIVOXIL HYDROCHLORIDE (CEFCAPENE PIVOXIL HYDROCHLORIDE) [Suspect]
     Indication: ILL-DEFINED DISORDER
     Dosage: ORAL
     Route: 048
     Dates: start: 20050311
  5. OSELTAMIVIR (OSELTAMIVIR) [Suspect]
     Indication: ILL-DEFINED DISORDER
     Dosage: ORAL
     Route: 048
     Dates: start: 20050312

REACTIONS (3)
  - INFLUENZA [None]
  - JAUNDICE [None]
  - SKIN LACERATION [None]
